FAERS Safety Report 21747482 (Version 8)
Quarter: 2023Q4

REPORT INFORMATION
  Report Type: Report from Study
  Country: US (occurrence: US)
  Receive Date: 20221219
  Receipt Date: 20231213
  Transmission Date: 20240109
  Serious: Yes (Other)
  Sender: FDA-Public Use
  Company Number: US-002147023-NVSC2022US289497

PATIENT

DRUGS (3)
  1. KESIMPTA [Suspect]
     Active Substance: OFATUMUMAB
     Indication: Relapsing multiple sclerosis
     Dosage: UNK
     Route: 058
     Dates: start: 20221208
  2. KESIMPTA [Suspect]
     Active Substance: OFATUMUMAB
     Dosage: UNK
     Route: 058
  3. KESIMPTA [Suspect]
     Active Substance: OFATUMUMAB
     Dosage: UNK
     Route: 065

REACTIONS (10)
  - Multiple sclerosis pseudo relapse [Unknown]
  - Hypoaesthesia [Unknown]
  - Brain fog [Unknown]
  - Feeling cold [Recovering/Resolving]
  - Musculoskeletal stiffness [Recovering/Resolving]
  - Temperature intolerance [Unknown]
  - Limb discomfort [Unknown]
  - Malaise [Unknown]
  - Stress [Unknown]
  - Pyrexia [Recovering/Resolving]
